FAERS Safety Report 6433350-8 (Version None)
Quarter: 2009Q4

REPORT INFORMATION
  Report Type: 
  Country: None (occurrence: None)
  Receive Date: 20091105
  Receipt Date: 20091022
  Transmission Date: 20100525
  Serious: No
  Sender: FDA-Public Use
  Company Number: B0599364A

PATIENT
  Age: 52 Year
  Sex: Male

DRUGS (4)
  1. ADEFOVIR DIPIVOXIL KIT [Suspect]
     Indication: HEPATITIS B
     Dosage: 10 MG, PER DAY;
     Dates: start: 20080301
  2. LAMIVUDINE [Suspect]
     Indication: HEPATITIS B
     Dosage: 100 MG, PER DAY;
     Dates: start: 20041001
  3. ENTECAVIR (FORMULATION UNKNOWN) (ENTECAVIR) [Suspect]
     Indication: HEPATITIS B
     Dosage: 5 MG;
  4. INSULIN [Concomitant]

REACTIONS (6)
  - BLOOD GLUCOSE INCREASED [None]
  - HEPATIC FIBROSIS [None]
  - HEPATIC NECROSIS [None]
  - HEPATIC STEATOSIS [None]
  - HEPATITIS B DNA INCREASED [None]
  - THERAPEUTIC RESPONSE DECREASED [None]
